FAERS Safety Report 4292795-5 (Version None)
Quarter: 2004Q1

REPORT INFORMATION
  Report Type: 
  Country: None (occurrence: None)
  Receive Date: 20040210
  Receipt Date: 20040129
  Transmission Date: 20041129
  Serious: Yes (Hospitalization)
  Sender: FDA-Public Use
  Company Number: 04P-056-0249285-00

PATIENT
  Age: 53 Year
  Sex: Female

DRUGS (2)
  1. HUMIRA [Suspect]
     Indication: POLYARTHRITIS
     Dosage: 40 MG, SUBCUTANEOUS
     Route: 058
     Dates: start: 20030610
  2. METHOTREXATE [Suspect]
     Indication: POLYARTHRITIS
     Dosage: 15 MG, 1 IN 1 WK, PER ORAL
     Route: 048

REACTIONS (5)
  - EAR PAIN [None]
  - HAEMATURIA [None]
  - INJECTION SITE REACTION [None]
  - KERATOCONJUNCTIVITIS SICCA [None]
  - RED BLOOD CELL COUNT INCREASED [None]
